FAERS Safety Report 4407234-0 (Version None)
Quarter: 2004Q3

REPORT INFORMATION
  Report Type: 
  Country: None (occurrence: None)
  Receive Date: 20040723
  Receipt Date: 20040723
  Transmission Date: 20050211
  Serious: Yes (Other)
  Sender: FDA-Public Use
  Company Number: None

PATIENT
  Age: 40 Year
  Sex: Female
  Weight: 76.2043 kg

DRUGS (2)
  1. PAXIL [Suspect]
     Dosage: 1 PER DAY ORAL
     Route: 048
     Dates: start: 20040201, end: 20040712
  2. PAXIL [Suspect]
     Dosage: 1 PER DAY ORAL
     Route: 048
     Dates: start: 20040713, end: 20040722

REACTIONS (4)
  - BLOOD PRESSURE FLUCTUATION [None]
  - DRUG WITHDRAWAL SYNDROME [None]
  - MALAISE [None]
  - MIGRAINE [None]
